FAERS Safety Report 6762073-0 (Version None)
Quarter: 2010Q2

REPORT INFORMATION
  Report Type: 
  Country: None (occurrence: None)
  Receive Date: 20100609
  Receipt Date: 20100601
  Transmission Date: 20101027
  Serious: Yes (Hospitalization, Other)
  Sender: FDA-Public Use
  Company Number: US-ABBOTT-10P-163-0647296-00

PATIENT
  Sex: Male
  Weight: 104.42 kg

DRUGS (9)
  1. HUMIRA [Suspect]
     Indication: RHEUMATOID ARTHRITIS
     Route: 058
     Dates: start: 20030101, end: 20100401
  2. FENTANYL [Suspect]
     Indication: PAIN
  3. MORPHINE SULFATE [Suspect]
     Indication: PAIN
     Route: 048
  4. MORPHINE [Concomitant]
     Indication: PAIN
     Dosage: ONCE EVERY 8 HOURS AS NEEDED
  5. PREDNISONE [Concomitant]
     Indication: DRUG USE FOR UNKNOWN INDICATION
  6. ALLOPURINOL [Concomitant]
     Indication: GOUT
  7. AVADAR [Concomitant]
     Indication: PROSTATOMEGALY
  8. FLOMAX [Concomitant]
     Indication: PROSTATOMEGALY
  9. FLUOXETINE [Concomitant]
     Indication: DEPRESSION

REACTIONS (18)
  - ARTHRALGIA [None]
  - BACK PAIN [None]
  - BLOOD PRESSURE INCREASED [None]
  - BLOOD TESTOSTERONE DECREASED [None]
  - DRUG DOSE OMISSION [None]
  - FALL [None]
  - FOOT FRACTURE [None]
  - HYPERSOMNIA [None]
  - HYPOAESTHESIA [None]
  - HYPOKINESIA [None]
  - JOINT SWELLING [None]
  - MOOD SWINGS [None]
  - MUSCULOSKELETAL STIFFNESS [None]
  - NECK PAIN [None]
  - NODULE ON EXTREMITY [None]
  - PAIN IN EXTREMITY [None]
  - SWELLING [None]
  - WITHDRAWAL SYNDROME [None]
